FAERS Safety Report 9110802 (Version 1)
Quarter: 2013Q1

REPORT INFORMATION
  Report Type: Spontaneous
  Country: US (occurrence: US)
  Receive Date: 20130219
  Receipt Date: 20130219
  Transmission Date: 20140127
  Serious: No
  Sender: FDA-Public Use
  Company Number: US-BRISTOL-MYERS SQUIBB COMPANY-16908113

PATIENT
  Age: 49 Year
  Sex: Female
  Weight: 73.47 kg

DRUGS (1)
  1. ABATACEPT SUBQ INJECTION 125MG/ML [Suspect]
     Indication: SYSTEMIC LUPUS ERYTHEMATOSUS
     Dosage: LAST INF:  27AUG2012,IV
     Route: 058

REACTIONS (2)
  - Arthralgia [Not Recovered/Not Resolved]
  - Hypersensitivity [Unknown]
